FAERS Safety Report 9027701 (Version 1)
Quarter: 2013Q1

REPORT INFORMATION
  Report Type: Spontaneous
  Country: IT (occurrence: IT)
  Receive Date: 20130124
  Receipt Date: 20130124
  Transmission Date: 20140127
  Serious: Yes (Other)
  Sender: FDA-Public Use
  Company Number: IT-ACCORD-016075

PATIENT
  Age: 66 Year
  Sex: Female

DRUGS (3)
  1. IRINOTECAN HYDROCHLORIDE [Suspect]
     Indication: ADENOCARCINOMA OF COLON
     Dosage: PERIOD: 14 DAYS
     Route: 042
     Dates: start: 20121003
  2. FLUOROURACIL [Suspect]
     Indication: ADENOCARCINOMA OF COLON
     Dosage: PERIOD: 14 DAYS
     Route: 042
     Dates: start: 20121003
  3. ERBITUX [Suspect]
     Indication: ADENOCARCINOMA OF COLON
     Dosage: PERIOD: 14 DAYS
     Route: 042
     Dates: start: 20121003

REACTIONS (1)
  - Conjunctivitis [Recovering/Resolving]
